FAERS Safety Report 7094209-9 (Version None)
Quarter: 2010Q4

REPORT INFORMATION
  Report Type: 
  Country: None (occurrence: None)
  Receive Date: 20101110
  Receipt Date: 20101029
  Transmission Date: 20110411
  Serious: Yes (Other)
  Sender: FDA-Public Use
  Company Number: US-ACTELION-A-US2010-41242

PATIENT

DRUGS (1)
  1. TRACLEER [Suspect]
     Dosage: UNK MG, UNK
     Route: 048
     Dates: end: 20100101

REACTIONS (2)
  - HEPATIC ENZYME INCREASED [None]
  - RECTAL HAEMORRHAGE [None]
